FAERS Safety Report 24637419 (Version 3)
Quarter: 2025Q1

REPORT INFORMATION
  Report Type: Report from Study
  Country: US (occurrence: US)
  Receive Date: 20241119
  Receipt Date: 20250123
  Transmission Date: 20250409
  Serious: No
  Sender: AGIOS PHARMACEUTICALS
  Company Number: US-AGIOS-2411US03954

PATIENT
  Sex: Female

DRUGS (2)
  1. MITAPIVAT [Suspect]
     Active Substance: MITAPIVAT
     Indication: Pyruvate kinase deficiency anaemia
     Route: 048
     Dates: start: 20241031
  2. MITAPIVAT [Suspect]
     Active Substance: MITAPIVAT
     Route: 065

REACTIONS (6)
  - Feeling abnormal [Recovering/Resolving]
  - Hot flush [Recovering/Resolving]
  - Dizziness [Recovering/Resolving]
  - Haemoglobin decreased [Unknown]
  - Rash [Recovered/Resolved]
  - Paraesthesia [Unknown]
